FAERS Safety Report 5971089-3 (Version None)
Quarter: 2008Q4

REPORT INFORMATION
  Report Type: 
  Country: None (occurrence: None)
  Receive Date: 20081128
  Receipt Date: 20081121
  Transmission Date: 20090506
  Serious: Yes (Other)
  Sender: FDA-Public Use
  Company Number: US-BAYER-200835525NA

PATIENT
  Age: 33 Year
  Sex: Female
  Weight: 57 kg

DRUGS (1)
  1. MIRENA [Suspect]
     Indication: CONTRACEPTION
     Route: 015
     Dates: start: 20070201

REACTIONS (11)
  - ACNE [None]
  - DECREASED INTEREST [None]
  - DEPRESSION [None]
  - HEADACHE [None]
  - MENSTRUAL DISORDER [None]
  - MOOD SWINGS [None]
  - NAUSEA [None]
  - OVARIAN CYST [None]
  - SUICIDAL IDEATION [None]
  - VULVOVAGINAL DRYNESS [None]
  - WEIGHT INCREASED [None]
